FAERS Safety Report 9505642 (Version 1)
Quarter: 2013Q1

REPORT INFORMATION
  Report Type: Spontaneous
  Country: US (occurrence: None)
  Receive Date: 20130220
  Receipt Date: 20130220
  Transmission Date: 20140127
  Serious: No
  Sender: FDA-Public Use
  Company Number: 1000041093

PATIENT
  Age: 63 Year
  Sex: Female

DRUGS (4)
  1. VIIBYRD [Suspect]
     Indication: DEPRESSION
     Dosage: 10 MG (10 MG, 1 IN 1 D), ORAL
     Route: 048
     Dates: start: 20121212, end: 20121213
  2. XANAX (ALPRAZOLAM) (ALPRAZOLAM) [Concomitant]
  3. CLIMARA (ESTRADIOL) (ESTRADIOL) [Concomitant]
  4. LISINOPREL/HYDROCHLOROTHIAZIDE (ZESTORETIC) (ZESTORETIC) [Concomitant]

REACTIONS (4)
  - Insomnia [None]
  - Chest discomfort [None]
  - Feeling jittery [None]
  - Feeling abnormal [None]
